FAERS Safety Report 18877701 (Version 1)
Quarter: 2021Q1

REPORT INFORMATION
  Report Type: Spontaneous
  Country: SK (occurrence: SK)
  Receive Date: 20210211
  Receipt Date: 20210211
  Transmission Date: 20210420
  Serious: Yes (Death)
  Sender: FDA-Public Use
  Company Number: SK-AMGEN-SVKSP2021020838

PATIENT
  Sex: Male

DRUGS (1)
  1. NPLATE [Suspect]
     Active Substance: ROMIPLOSTIM
     Indication: PRODUCT USED FOR UNKNOWN INDICATION
     Dosage: 3.5 MICROGRAM/KILOGRAM
     Route: 065
     Dates: start: 201912

REACTIONS (1)
  - COVID-19 [Fatal]
